FAERS Safety Report 10174726 (Version 2)
Quarter: 2014Q2

REPORT INFORMATION
  Report Type: Spontaneous
  Country: US (occurrence: US)
  Receive Date: 20140515
  Receipt Date: 20140523
  Transmission Date: 20141212
  Serious: Yes (Other)
  Sender: FDA-Public Use
  Company Number: US-PFIZER INC-2014130360

PATIENT
  Age: 47 Year
  Sex: Female

DRUGS (4)
  1. ZITHROMAX [Suspect]
     Dosage: UNK
  2. BIAXIN [Suspect]
     Dosage: UNK
  3. CIPRO [Suspect]
     Dosage: UNK
  4. ADVAIR [Suspect]
     Dosage: UNK
     Dates: start: 20111012

REACTIONS (23)
  - Rheumatoid arthritis [Unknown]
  - Polymyositis [Unknown]
  - Otitis media acute [Unknown]
  - Drug dose omission [Unknown]
  - Myalgia [Unknown]
  - Myositis [Unknown]
  - Calcium metabolism disorder [Unknown]
  - Effusion [Unknown]
  - Ear pain [Unknown]
  - Cough [Unknown]
  - Ear canal erythema [Unknown]
  - Oedema [Unknown]
  - Pharyngeal erythema [Unknown]
  - Increased upper airway secretion [Unknown]
  - Drug hypersensitivity [Unknown]
  - Herpes zoster [Unknown]
  - Nervous system disorder [Unknown]
  - Bronchitis [Unknown]
  - Rhinitis allergic [Unknown]
  - Malaise [Unknown]
  - Ear discomfort [Unknown]
  - Dyspnoea [Unknown]
  - Productive cough [Unknown]
